FAERS Safety Report 9407862 (Version 2)
Quarter: 2014Q2

REPORT INFORMATION
  Report Type: Spontaneous
  Country: IT (occurrence: IT)
  Receive Date: 20130718
  Receipt Date: 20140408
  Transmission Date: 20141212
  Serious: Yes (Other)
  Sender: FDA-Public Use
  Company Number: IT-ELI_LILLY_AND_COMPANY-IT201307003341

PATIENT
  Age: 74 Year
  Sex: Female
  Weight: 78 kg

DRUGS (3)
  1. GEMZAR [Suspect]
     Indication: OVARIAN CANCER
     Dosage: 1200 MG, CYCLICAL
     Route: 042
     Dates: start: 20121227, end: 20130705
  2. GEMZAR [Suspect]
     Dosage: 1000 MG, CYCLICAL
     Route: 042
  3. CARBOPLATIN [Concomitant]
     Dosage: 250 MG, UNK
     Route: 042
     Dates: start: 20121227, end: 20130515

REACTIONS (2)
  - Deep vein thrombosis [Recovered/Resolved]
  - Anaemia [Recovered/Resolved]
